FAERS Safety Report 7677801-X (Version None)
Quarter: 2011Q3

REPORT INFORMATION
  Report Type: 
  Country: None (occurrence: None)
  Receive Date: 20110808
  Receipt Date: 20110802
  Transmission Date: 20111222
  Serious: Yes (Other)
  Sender: FDA-Public Use
  Company Number: GB-ACCORD-009907

PATIENT
  Age: 46 Year
  Sex: Male

DRUGS (2)
  1. SIMVASTATIN [Suspect]
     Indication: HYPERLIPIDAEMIA
     Dosage: 40.00-MG-1.0DAYS / ORAL
     Route: 048
     Dates: start: 20110705, end: 20110709
  2. OMEPRAZOLE [Concomitant]

REACTIONS (8)
  - DIZZINESS [None]
  - DYSPEPSIA [None]
  - HEADACHE [None]
  - PRODUCT SUBSTITUTION ISSUE [None]
  - HYPOAESTHESIA [None]
  - MUSCULAR WEAKNESS [None]
  - ASTHENIA [None]
  - PRURITUS [None]
